FAERS Safety Report 14838497 (Version 2)
Quarter: 2018Q2

REPORT INFORMATION
  Report Type: Report from Study
  Country: KR (occurrence: KR)
  Receive Date: 20180502
  Receipt Date: 20180605
  Transmission Date: 20180711
  Serious: Yes (Hospitalization)
  Sender: FDA-Public Use
  Company Number: KR-EISAI MEDICAL RESEARCH-EC-2018-039383

PATIENT
  Age: 61 Year
  Sex: Female
  Weight: 49.1 kg

DRUGS (20)
  1. DETHASONE [Concomitant]
  2. ENCOVER [Concomitant]
  3. SMECTA [Concomitant]
     Active Substance: MONTMORILLONITE
  4. FOSAMAX PLUS D [Concomitant]
     Active Substance: ALENDRONATE SODIUM\CHOLECALCIFEROL
  5. DICHLOZID [Concomitant]
  6. IR CODON [Concomitant]
     Active Substance: OXYCODONE HYDROCHLORIDE
  7. OPTIDERM [Concomitant]
  8. PHAZYME [Concomitant]
     Active Substance: DIMETHICONE 410
  9. SYNTHROID [Concomitant]
     Active Substance: LEVOTHYROXINE SODIUM
  10. CALCIUM CARBONATE. [Concomitant]
     Active Substance: CALCIUM CARBONATE
  11. LENVATINIB [Suspect]
     Active Substance: LENVATINIB
     Indication: PAPILLARY THYROID CANCER
     Dosage: BLINDED DOSAGE
     Route: 048
     Dates: start: 20170901, end: 20180427
  12. ROSUVAMIBE [Concomitant]
  13. SEVIKAR [Concomitant]
     Active Substance: AMLODIPINE BESYLATE\OLMESARTAN MEDOXOMIL
  14. NEBIVOLOL. [Concomitant]
     Active Substance: NEBIVOLOL
  15. CLARIC [Concomitant]
  16. AMOXICILLIN. [Concomitant]
     Active Substance: AMOXICILLIN
  17. HEXAMEDIN [Concomitant]
  18. MEGACE [Concomitant]
     Active Substance: MEGESTROL ACETATE
  19. RAMEZOL [Concomitant]
  20. ULTRACET [Concomitant]
     Active Substance: ACETAMINOPHEN\TRAMADOL HYDROCHLORIDE

REACTIONS (1)
  - Cholecystitis [Recovered/Resolved]

NARRATIVE: CASE EVENT DATE: 20180428
